FAERS Safety Report 4977571-X (Version None)
Quarter: 2006Q2

REPORT INFORMATION
  Report Type: 
  Country: None (occurrence: None)
  Receive Date: 20060414
  Receipt Date: 20060403
  Transmission Date: 20061013
  Serious: Yes (Hospitalization)
  Sender: FDA-Public Use
  Company Number: 2006-140934-NL

PATIENT
  Age: 74 Year
  Sex: Female

DRUGS (10)
  1. MIRTAZAPINE [Suspect]
     Indication: DEPRESSION
     Dosage: 30 MG QD ORAL
     Route: 048
  2. DIAZEPAM [Suspect]
     Indication: ANXIETY DISORDER
     Dosage: 10 MG PRN ORAL
     Route: 048
  3. SERTRALINE HYDROCHLORIDE [Suspect]
     Indication: ANXIETY DISORDER
     Dosage: 150 MG QD ORAL
     Route: 048
  4. REBOXETINE [Suspect]
     Dosage: ORAL
     Route: 048
  5. ATENOLOL [Concomitant]
  6. PANTOPRAZOLE SODIUM [Concomitant]
  7. PERINDOPRIL [Concomitant]
  8. DOCUSATE SODIUM [Concomitant]
  9. OLANZAPINE [Concomitant]
  10. AMITRIPTYLINE HYDROCHLORIDE [Concomitant]

REACTIONS (3)
  - AKATHISIA [None]
  - CHILLS [None]
  - SEROTONIN SYNDROME [None]
